FAERS Safety Report 6883054-2 (Version None)
Quarter: 2010Q3

REPORT INFORMATION
  Report Type: 
  Country: None (occurrence: None)
  Receive Date: 20100729
  Receipt Date: 20100720
  Transmission Date: 20110219
  Serious: Yes (Other)
  Sender: FDA-Public Use
  Company Number: BR-ROCHE-716716

PATIENT
  Sex: Female
  Weight: 68 kg

DRUGS (1)
  1. TOCILIZUMAB [Suspect]
     Indication: RHEUMATOID ARTHRITIS
     Dosage: FORM INFUSION, TEMPORARILY DISCONTINUED
     Route: 042
     Dates: start: 20100504, end: 20100614

REACTIONS (2)
  - ABORTION MISSED [None]
  - FOETAL HEART RATE ABNORMAL [None]
